FAERS Safety Report 12317066 (Version 1)
Quarter: 2016Q2

REPORT INFORMATION
  Report Type: Spontaneous
  Country: US (occurrence: None)
  Receive Date: 20160428
  Receipt Date: 20160428
  Transmission Date: 20160815
  Serious: Yes (Life-Threatening, Hospitalization)
  Sender: FDA-Public Use
  Company Number: None

PATIENT
  Age: 69 Year
  Sex: Female
  Weight: 59.42 kg

DRUGS (7)
  1. MAG-G [Concomitant]
     Active Substance: MAGNESIUM GLUCONATE
  2. FLONASE [Concomitant]
     Active Substance: FLUTICASONE PROPIONATE
  3. CALCIUM [Concomitant]
     Active Substance: CALCIUM
  4. COQ10 [Concomitant]
     Active Substance: UBIDECARENONE
  5. VIT. D [Concomitant]
  6. MOXIFLOXACIN, 500MG [Suspect]
     Active Substance: MOXIFLOXACIN
     Indication: MYCOBACTERIUM CHELONAE INFECTION
     Route: 048
     Dates: start: 20160423, end: 20160423
  7. VIT. B2 [Concomitant]

REACTIONS (1)
  - Anaphylactic shock [None]

NARRATIVE: CASE EVENT DATE: 20160423
